FAERS Safety Report 6540872-8 (Version None)
Quarter: 2010Q1

REPORT INFORMATION
  Report Type: 
  Country: None (occurrence: None)
  Receive Date: 20100118
  Receipt Date: 20100112
  Transmission Date: 20100710
  Serious: Yes (Death, Hospitalization)
  Sender: FDA-Public Use
  Company Number: PHHY2009CA49125

PATIENT
  Sex: Male

DRUGS (9)
  1. CLOZARIL [Suspect]
     Indication: SCHIZOAFFECTIVE DISORDER
     Dosage: 950 MG DAILY
     Route: 048
     Dates: start: 20070901
  2. BUPROPION HYDROCHLORIDE [Concomitant]
     Dosage: 150 MG, QD
  3. CELEXA [Concomitant]
     Dosage: 60 MG, QD
  4. COVERSYL [Concomitant]
     Dosage: 4 MG, QD
  5. CRESTOR [Concomitant]
     Dosage: 10 MG, QD
  6. ACETYLSALICYLIC ACID [Concomitant]
     Dosage: 81 MG, UNK
  7. DDAVP [Concomitant]
     Dosage: 0.6 MG, QHS
  8. METFORMIN [Concomitant]
     Dosage: 850 MG, QD
  9. VITAMIN D [Concomitant]
     Dosage: 1000 IU, QD

REACTIONS (3)
  - CIRCULATORY COLLAPSE [None]
  - CONVULSION [None]
  - FACE INJURY [None]
